FAERS Safety Report 5103873-2 (Version None)
Quarter: 2006Q3

REPORT INFORMATION
  Report Type: 
  Country: None (occurrence: None)
  Receive Date: 20060913
  Receipt Date: 20060901
  Transmission Date: 20061208
  Serious: Yes (Other)
  Sender: FDA-Public Use
  Company Number: FR-GLAXOSMITHKLINE-B0436614A

PATIENT
  Age: 21 Year
  Sex: Female

DRUGS (1)
  1. MALARONE [Suspect]
     Indication: MALARIA PROPHYLAXIS
     Dosage: 1TAB PER DAY
     Route: 048
     Dates: start: 20060821

REACTIONS (4)
  - DIARRHOEA [None]
  - INFECTION [None]
  - LABORATORY TEST INTERFERENCE [None]
  - THROMBOCYTOPENIA [None]
